FAERS Safety Report 9723123 (Version 1)
Quarter: 2013Q4

REPORT INFORMATION
  Report Type: Spontaneous
  Country: US (occurrence: US)
  Receive Date: 20131202
  Receipt Date: 20131202
  Transmission Date: 20140711
  Serious: No
  Sender: FDA-Public Use
  Company Number: US-BAYER-2013-146589

PATIENT
  Age: 67 Year
  Sex: Male
  Weight: 99.77 kg

DRUGS (3)
  1. ALEVE CAPLET [Suspect]
     Indication: TOOTHACHE
     Dosage: 2 DF, PRN
     Route: 048
  2. LISINOPRIL [Concomitant]
  3. HYDROCHLOROTHIAZIDE [Concomitant]

REACTIONS (4)
  - Drug ineffective [None]
  - Therapeutic response unexpected [None]
  - Headache [None]
  - Drug ineffective [None]
